FAERS Safety Report 5492758-8 (Version None)
Quarter: 2007Q4

REPORT INFORMATION
  Report Type: 
  Country: None (occurrence: None)
  Receive Date: 20071023
  Receipt Date: 20071019
  Transmission Date: 20080405
  Serious: Yes (Life-Threatening, Hospitalization)
  Sender: FDA-Public Use
  Company Number: PHNU2007DE03491

PATIENT
  Age: 75 Year
  Sex: Male

DRUGS (5)
  1. SPIRIVA [Suspect]
     Indication: ASTHMA
     Dosage: UNKNOWN
  2. BRONCHOSPASMIN [Suspect]
     Indication: ASTHMA
     Dosage: UNKNOWN
     Dates: start: 20071014, end: 20071016
  3. FORADIL [Suspect]
     Indication: ASTHMA
     Dates: start: 20071016
  4. THEOPHYLLINE [Suspect]
     Indication: ASTHMA
     Dosage: UNKNOWN
     Route: 048
     Dates: start: 20071014
  5. PULMICORT [Concomitant]
     Indication: ASTHMA
     Dosage: UNKNOWN

REACTIONS (6)
  - COLD SWEAT [None]
  - DIZZINESS [None]
  - LOSS OF CONSCIOUSNESS [None]
  - TACHYCARDIA [None]
  - TORSADE DE POINTES [None]
  - VENTRICULAR TACHYCARDIA [None]
